FAERS Safety Report 4314187-2 (Version None)
Quarter: 2004Q1

REPORT INFORMATION
  Report Type: 
  Country: None (occurrence: None)
  Receive Date: 20040302
  Receipt Date: 20040126
  Transmission Date: 20041129
  Serious: No
  Sender: FDA-Public Use
  Company Number: 701557

PATIENT
  Age: 56 Year
  Sex: Male
  Weight: 94.8018 kg

DRUGS (1)
  1. AMEVIVE [Suspect]
     Indication: PSORIASIS
     Dosage: 15 MG QW IM
     Route: 030
     Dates: start: 20040107

REACTIONS (2)
  - FATIGUE [None]
  - HEADACHE [None]
